FAERS Safety Report 26164058 (Version 1)
Quarter: 2025Q4

REPORT INFORMATION
  Report Type: Spontaneous
  Country: GB (occurrence: GB)
  Receive Date: 20251216
  Receipt Date: 20251216
  Transmission Date: 20260117
  Serious: Yes (Other)
  Sender: Alora Pharma
  Company Number: GB-VERTICAL PHARMACEUTICALS-2025ALO02651

PATIENT
  Age: 59 Year
  Sex: Female

DRUGS (1)
  1. ESTRADIOL [Suspect]
     Active Substance: ESTRADIOL
     Indication: Product used for unknown indication
     Dosage: SACHETS
     Route: 065

REACTIONS (3)
  - Medication error [Unknown]
  - Sleep disorder [Not Recovered/Not Resolved]
  - Irritability [Unknown]
